FAERS Safety Report 20551587 (Version 3)
Quarter: 2022Q1

REPORT INFORMATION
  Report Type: Spontaneous
  Country: IT (occurrence: IT)
  Receive Date: 20220304
  Receipt Date: 20220325
  Transmission Date: 20220423
  Serious: Yes (Other)
  Sender: FDA-Public Use
  Company Number: IT-CELLTRION INC.-2022IT002403

PATIENT

DRUGS (8)
  1. RITUXIMAB [Suspect]
     Active Substance: RITUXIMAB
     Indication: Hairy cell leukaemia
     Dosage: FIRST COURSE OF WEEKLY CLADRIBINE PLUS RITUXIMAB, UNKNOWN
     Route: 065
     Dates: start: 2011
  2. RITUXIMAB [Suspect]
     Active Substance: RITUXIMAB
     Dosage: SECOND COURSE
     Route: 065
     Dates: start: 2015
  3. RITUXIMAB [Suspect]
     Active Substance: RITUXIMAB
     Dosage: THE PATIENT, TWO DAYS AFTER A BRONCHOALVEOLAR LAVAGE, WAS ENROLLED IN OUR TRIAL OF VEMURAFENIB PLUS
     Dates: start: 2016
  4. CLADRIBINE [Suspect]
     Active Substance: CLADRIBINE
     Indication: Hairy cell leukaemia
     Dosage: SECOND COURSE
     Route: 065
     Dates: start: 2011
  5. CLADRIBINE [Suspect]
     Active Substance: CLADRIBINE
     Dosage: FIRST COURSE OF WEEKLY CLADRIBINE PLUS RITUXIMAB
     Route: 065
     Dates: start: 2015
  6. INTERFERON [Suspect]
     Active Substance: INTERFERON
     Indication: Hairy cell leukaemia
     Dosage: 3 COURSES OVER 20 YEARS
  7. LEUSTATIN [Suspect]
     Active Substance: CLADRIBINE
     Indication: Hairy cell leukaemia
     Dosage: UNK
     Route: 065
     Dates: start: 2011
  8. LEUSTATIN [Suspect]
     Active Substance: CLADRIBINE
     Dosage: UNK
     Route: 065
     Dates: start: 2015

REACTIONS (10)
  - Hairy cell leukaemia recurrent [Recovered/Resolved]
  - Febrile neutropenia [Unknown]
  - Cytopenia [Unknown]
  - Neutropenia [Unknown]
  - Pyrexia [Unknown]
  - Hypotension [Recovered/Resolved]
  - Pseudomonas test positive [Recovered/Resolved]
  - Aspergillus infection [Recovered/Resolved]
  - Drug effective for unapproved indication [Unknown]
  - Off label use [Unknown]

NARRATIVE: CASE EVENT DATE: 20150101
